FAERS Safety Report 7114580-9 (Version None)
Quarter: 2010Q4

REPORT INFORMATION
  Report Type: 
  Country: None (occurrence: None)
  Receive Date: 20101121
  Receipt Date: 20101109
  Transmission Date: 20110411
  Serious: Yes (Hospitalization)
  Sender: FDA-Public Use
  Company Number: ES-ELI_LILLY_AND_COMPANY-ES201011002537

PATIENT
  Sex: Female
  Weight: 61 kg

DRUGS (8)
  1. FORTEO [Suspect]
     Indication: OSTEOPOROSIS
     Dosage: 20 UG, DAILY (1/D)
     Route: 058
     Dates: start: 20100301
  2. ZALDIAR [Concomitant]
     Indication: ANALGESIC THERAPY
     Dosage: 37.5 MG, DAILY (1/D)
     Route: 048
  3. PLUSVENT [Concomitant]
     Indication: EMPHYSEMA
     Dosage: 2 D/F, 2/D
     Route: 048
  4. PRISDAL [Concomitant]
     Indication: DEPRESSION
     Dosage: 30 MG, DAILY (1/D)
     Route: 048
  5. LIORESAL [Concomitant]
     Indication: MUSCLE SPASTICITY
     Dosage: 72.5 MG, DAILY (1/D)
     Route: 048
  6. TRANKIMAZIN [Concomitant]
     Indication: GENERALISED ANXIETY DISORDER
     Dosage: 0.5 MG, DAILY (1/D)
     Route: 048
  7. TRAMADOL HCL [Concomitant]
     Indication: ANALGESIC THERAPY
     Dosage: 100 MG, DAILY (1/D)
     Route: 048
  8. EPROSARTAN [Concomitant]
     Indication: HYPERTENSION
     Dosage: 300 MG, DAILY (1/D)
     Route: 048

REACTIONS (2)
  - FALL [None]
  - UPPER LIMB FRACTURE [None]
